FAERS Safety Report 9386765 (Version 1)
Quarter: 2013Q3

REPORT INFORMATION
  Report Type: Spontaneous
  Country: US (occurrence: None)
  Receive Date: 20130703
  Receipt Date: 20130703
  Transmission Date: 20140515
  Serious: Yes (Disabling, Other)
  Sender: FDA-Public Use
  Company Number: None

PATIENT
  Age: 35 Year
  Sex: Male
  Weight: 79.38 kg

DRUGS (2)
  1. PRAMIPEXOLE [Suspect]
     Indication: DEPRESSION
     Route: 048
     Dates: start: 20110801, end: 20120301
  2. PRAMIPEXOL (MIRAPEX) [Concomitant]

REACTIONS (8)
  - Off label use [None]
  - Impulse-control disorder [None]
  - Condition aggravated [None]
  - Somnolence [None]
  - Movement disorder [None]
  - Catatonia [None]
  - Bradykinesia [None]
  - Depression [None]
